FAERS Safety Report 23960554 (Version 1)
Quarter: 2024Q2

REPORT INFORMATION
  Report Type: Spontaneous
  Country: US (occurrence: None)
  Receive Date: 20240610
  Receipt Date: 20240610
  Transmission Date: 20240715
  Serious: Yes (Hospitalization)
  Sender: FDA-Public Use
  Company Number: None

PATIENT
  Sex: Female

DRUGS (2)
  1. ARANESP [Suspect]
     Active Substance: DARBEPOETIN ALFA
     Indication: Anaemia of chronic disease
     Dosage: FREQUENCY : WEEKLY;?STRENGTH: 100MCG/.5
     Route: 042
     Dates: start: 202406
  2. MYCOPHENOLIC ACID DR [Concomitant]

REACTIONS (2)
  - Vomiting [None]
  - Diarrhoea [None]
